FAERS Safety Report 19651466 (Version 3)
Quarter: 2021Q4

REPORT INFORMATION
  Report Type: Spontaneous
  Country: SE (occurrence: SE)
  Receive Date: 20210803
  Receipt Date: 20211115
  Transmission Date: 20220303
  Serious: Yes (Death, Life-Threatening, Hospitalization, Other)
  Sender: FDA-Public Use
  Company Number: SE-ACCORD-234042

PATIENT
  Age: 68 Year
  Sex: Female
  Weight: 75.10 kg

DRUGS (29)
  1. GEMCITABINE HYDROCHLORIDE [Suspect]
     Active Substance: GEMCITABINE HYDROCHLORIDE
     Indication: Diffuse large B-cell lymphoma stage IV
     Dosage: 1870 MILLIGRAM, SINGLE
     Route: 042
     Dates: start: 20210202, end: 20210202
  2. OXALIPLATIN [Suspect]
     Active Substance: OXALIPLATIN
     Indication: Diffuse large B-cell lymphoma stage IV
     Dosage: 187 MILLIGRAM, SINGLE
     Route: 042
     Dates: start: 20210202, end: 20210202
  3. EPCORITAMAB [Suspect]
     Active Substance: EPCORITAMAB
     Indication: Diffuse large B-cell lymphoma stage IV
     Dosage: PRIMIMG DOSE: 0.16 MILLIGRAM, SINGLE;
     Route: 058
     Dates: start: 20210202, end: 20210202
  4. ALLOPURINOL [Concomitant]
     Active Substance: ALLOPURINOL
     Dates: start: 20210517, end: 20210517
  5. CETIRIZINE HYDROCHLORIDE [Concomitant]
     Active Substance: CETIRIZINE HYDROCHLORIDE
     Dates: start: 20210514, end: 20210531
  6. ONDANSETRON [Concomitant]
     Active Substance: ONDANSETRON
     Dates: start: 20210517, end: 20210517
  7. ACETAMINOPHEN [Concomitant]
     Active Substance: ACETAMINOPHEN
     Dates: start: 20210514, end: 20210624
  8. PEGFILGRASTIM [Concomitant]
     Active Substance: PEGFILGRASTIM
     Dates: start: 20210520, end: 20210520
  9. PREDNISOLONE [Concomitant]
     Active Substance: PREDNISOLONE
     Dates: start: 20210514, end: 20210531
  10. ACYCLOVIR [Concomitant]
     Active Substance: ACYCLOVIR
     Dates: start: 20210215, end: 20210624
  11. ACYCLOVIR [Concomitant]
     Active Substance: ACYCLOVIR
     Dates: start: 20200916
  12. CHOLECALCIFEROL [Concomitant]
     Active Substance: CHOLECALCIFEROL
     Dates: start: 20200408, end: 20210704
  13. DALTEPARIN [Concomitant]
     Active Substance: DALTEPARIN
     Dates: start: 20210326, end: 20210525
  14. KALIUMCHLORIDE [Concomitant]
     Dates: start: 20210608, end: 20210614
  15. PANTOPRAZOLE [Concomitant]
     Active Substance: PANTOPRAZOLE
     Dates: start: 20200511, end: 20210704
  16. UNIKALK [Concomitant]
     Dates: start: 20200402, end: 20210702
  17. ZOPICLONE [Concomitant]
     Active Substance: ZOPICLONE
     Dates: start: 20200318, end: 20210704
  18. SOLU-MEDROL [Concomitant]
     Active Substance: METHYLPREDNISOLONE SODIUM SUCCINATE
     Dates: start: 20210319
  19. DEXAVIT [Concomitant]
     Dates: start: 20210707, end: 20210710
  20. ATENOLOL [Concomitant]
     Active Substance: ATENOLOL
     Dates: start: 20210616, end: 20210704
  21. DIGOXIN [Concomitant]
     Active Substance: DIGOXIN
     Dates: start: 20210705, end: 20210706
  22. FILGRASTIM [Concomitant]
     Active Substance: FILGRASTIM
     Dates: start: 20210612, end: 20210706
  23. FUROSEMIDE [Concomitant]
     Active Substance: FUROSEMIDE
     Dates: start: 20210613, end: 20210704
  24. FIBRINOGEN HUMAN [Concomitant]
     Active Substance: FIBRINOGEN HUMAN
     Dates: start: 20210707, end: 20210707
  25. CALCIUM POLYSTYRENE SULFONATE [Concomitant]
     Active Substance: CALCIUM POLYSTYRENE SULFONATE
     Dates: start: 20210701, end: 20210704
  26. SPIRONOLACTONE [Concomitant]
     Active Substance: SPIRONOLACTONE
     Dates: start: 20210618, end: 20210630
  27. TOCILIZUMAB [Concomitant]
     Active Substance: TOCILIZUMAB
     Dates: start: 20210707, end: 20210707
  28. CALCIUM CHLORIDE [Concomitant]
     Active Substance: CALCIUM CHLORIDE
     Dates: start: 20210706, end: 20210707
  29. PREDNISONE [Concomitant]
     Active Substance: PREDNISONE
     Dates: start: 20210706, end: 20210709

REACTIONS (5)
  - Ascites [Fatal]
  - Off label use [Unknown]
  - Small intestinal perforation [Fatal]
  - Cytokine release syndrome [Recovered/Resolved]
  - Multiple organ dysfunction syndrome [Fatal]

NARRATIVE: CASE EVENT DATE: 20210606
